FAERS Safety Report 5954555-6 (Version None)
Quarter: 2008Q4

REPORT INFORMATION
  Report Type: 
  Country: None (occurrence: None)
  Receive Date: 20081117
  Receipt Date: 20081107
  Transmission Date: 20090506
  Serious: Yes (Life-Threatening, Hospitalization)
  Sender: FDA-Public Use
  Company Number: SI-ABBOTT-08P-261-0486501-00

PATIENT
  Sex: Female

DRUGS (5)
  1. HUMIRA [Suspect]
     Indication: RHEUMATOID ARTHRITIS
     Dates: start: 20071130
  2. METHYLPREDNISOLONE 16MG TAB [Concomitant]
     Indication: RHEUMATOID ARTHRITIS
     Dates: start: 19980101
  3. SULFASALAZINE [Concomitant]
     Indication: RHEUMATOID ARTHRITIS
     Dates: start: 20050101
  4. MELOXICAM [Concomitant]
     Indication: RHEUMATOID ARTHRITIS
     Dates: start: 20050101
  5. METHOTREXATE [Concomitant]
     Indication: RHEUMATOID ARTHRITIS
     Dates: start: 20060101

REACTIONS (5)
  - ARTHRALGIA [None]
  - BODY TEMPERATURE INCREASED [None]
  - ERYTHEMA [None]
  - JOINT SWELLING [None]
  - PAIN IN EXTREMITY [None]
